FAERS Safety Report 8770846 (Version 1)
Quarter: 2012Q4

REPORT INFORMATION
  Report Type: 
  Country: DE (occurrence: DE)
  Receive Date: 20120906
  Receipt Date: 20120906
  Transmission Date: 20130627
  Serious: Yes (Other)
  Sender: FDA-Public Use
  Company Number: DE-PFIZER INC-2012216847

PATIENT
  Age: 74 Year
  Sex: Female
  Weight: 73 kg

DRUGS (1)
  1. ATORVASTATIN CALCIUM [Suspect]
     Indication: HYPERCHOLESTEROLAEMIA
     Dosage: 40 mg, 1x/day
     Route: 048

REACTIONS (4)
  - Faeces pale [Not Recovered/Not Resolved]
  - Myalgia [Recovered/Resolved]
  - Nausea [Recovered/Resolved]
  - Gamma-glutamyltransferase increased [Unknown]
